FAERS Safety Report 7733443-9 (Version None)
Quarter: 2011Q3

REPORT INFORMATION
  Report Type: 
  Country: None (occurrence: None)
  Receive Date: 20110902
  Receipt Date: 20110902
  Transmission Date: 20111222
  Serious: Yes (Life-Threatening, Hospitalization, Other)
  Sender: FDA-Public Use
  Company Number: None

PATIENT
  Age: 19 Year
  Sex: Male
  Weight: 56.6996 kg

DRUGS (1)
  1. SEROQUEL [Suspect]
     Dosage: 25 MGS 2X

REACTIONS (4)
  - NIGHTMARE [None]
  - PHYSICAL ASSAULT [None]
  - SUICIDAL IDEATION [None]
  - ANGER [None]
